FAERS Safety Report 9242204 (Version 2)
Quarter: 2014Q3

REPORT INFORMATION
  Report Type: Spontaneous
  Country: US (occurrence: US)
  Receive Date: 20130419
  Receipt Date: 20140721
  Transmission Date: 20150326
  Serious: Yes (Hospitalization, Other)
  Sender: FDA-Public Use
  Company Number: US-009507513-1304USA009045

PATIENT
  Sex: Female

DRUGS (3)
  1. NUVARING [Suspect]
     Active Substance: ETHINYL ESTRADIOL\ETONOGESTREL
     Indication: CONTRACEPTION
     Dosage: UNK
     Route: 067
     Dates: start: 20110309, end: 20120511
  2. CLARITIN [Concomitant]
     Active Substance: LORATADINE
  3. CELEXA [Concomitant]
     Active Substance: CITALOPRAM HYDROBROMIDE

REACTIONS (4)
  - Deep vein thrombosis [Recovered/Resolved]
  - Syncope [Unknown]
  - Pulmonary embolism [Unknown]
  - Convulsion [Unknown]

NARRATIVE: CASE EVENT DATE: 20120501
